FAERS Safety Report 11227773 (Version 1)
Quarter: 2015Q2

REPORT INFORMATION
  Report Type: Spontaneous
  Country: US (occurrence: None)
  Receive Date: 20150629
  Receipt Date: 20150629
  Transmission Date: 20150821
  Serious: Yes (Life-Threatening)
  Sender: FDA-Public Use
  Company Number: None

PATIENT
  Age: 43 Year
  Sex: Male
  Weight: 68 kg

DRUGS (6)
  1. ATORVASTATIN [Concomitant]
     Active Substance: ATORVASTATIN
  2. LURASIDONE [Concomitant]
     Active Substance: LURASIDONE
  3. PROPRANOLOL [Concomitant]
     Active Substance: PROPRANOLOL\PROPRANOLOL HYDROCHLORIDE
  4. METFORMIN [Concomitant]
     Active Substance: METFORMIN HYDROCHLORIDE
  5. INVOKANA [Suspect]
     Active Substance: CANAGLIFLOZIN
     Indication: TYPE 2 DIABETES MELLITUS
     Dosage: 1 PILL QD ORAL
     Route: 048
     Dates: start: 20150622, end: 20150625
  6. LITHIUM CR [Concomitant]
     Active Substance: LITHIUM CARBONATE

REACTIONS (6)
  - Diabetic ketoacidosis [None]
  - Hypotension [None]
  - Acidosis [None]
  - Polyuria [None]
  - Treatment noncompliance [None]
  - Haematemesis [None]

NARRATIVE: CASE EVENT DATE: 20150625
